FAERS Safety Report 17181850 (Version 2)
Quarter: 2020Q1

REPORT INFORMATION
  Report Type: Report from Study
  Country: US (occurrence: US)
  Receive Date: 20191220
  Receipt Date: 20200116
  Transmission Date: 20200409
  Serious: Yes (Death, Hospitalization, Other)
  Sender: FDA-Public Use
  Company Number: US-ROCHE-2141715

PATIENT
  Age: 73 Year
  Sex: Male
  Weight: 100 kg

DRUGS (3)
  1. GUADECITABINE [Suspect]
     Active Substance: GUADECITABINE
     Indication: MYELODYSPLASTIC SYNDROME
     Route: 058
     Dates: start: 20180611, end: 20180615
  2. ATEZOLIZUMAB. [Suspect]
     Active Substance: ATEZOLIZUMAB
     Indication: MYELODYSPLASTIC SYNDROME
     Route: 042
     Dates: start: 20180618, end: 20180618
  3. CEFEPIME [Concomitant]
     Active Substance: CEFEPIME HYDROCHLORIDE
     Route: 065
     Dates: start: 20180614, end: 20180620

REACTIONS (2)
  - Leukocytosis [Unknown]
  - Sepsis [Unknown]

NARRATIVE: CASE EVENT DATE: 20180614
